FAERS Safety Report 4342540-X (Version None)
Quarter: 2004Q2

REPORT INFORMATION
  Report Type: 
  Country: None (occurrence: None)
  Receive Date: 20040416
  Receipt Date: 20040408
  Transmission Date: 20050107
  Serious: Yes (Life-Threatening)
  Sender: FDA-Public Use
  Company Number: 2004AP00479

PATIENT
  Age: 68 Year
  Sex: Male

DRUGS (2)
  1. CASODEX [Suspect]
     Indication: PROSTATE CANCER
     Dosage: 80 MG DAILY PO
     Route: 048
     Dates: start: 20030513, end: 20040106
  2. ZOLADEX [Suspect]
     Indication: PROSTATE CANCER
     Dosage: 10.8 MG Q3MO SQ
     Route: 058
     Dates: start: 20030513, end: 20031031

REACTIONS (2)
  - LYMPHOMA [None]
  - NEUTROPENIA [None]
